FAERS Safety Report 21480370 (Version 1)
Quarter: 2022Q4

REPORT INFORMATION
  Report Type: Report from Study
  Country: US (occurrence: US)
  Receive Date: 20221019
  Receipt Date: 20221019
  Transmission Date: 20230112
  Serious: Yes (Other)
  Sender: FDA-Public Use
  Company Number: US-BoehringerIngelheim-2021-BI-081408

PATIENT
  Age: 79 Year
  Sex: Male

DRUGS (2)
  1. OFEV [Suspect]
     Active Substance: NINTEDANIB
     Indication: Idiopathic pulmonary fibrosis
     Route: 048
     Dates: start: 20210126
  2. OFEV [Suspect]
     Active Substance: NINTEDANIB
     Route: 048
     Dates: end: 20210621

REACTIONS (39)
  - Idiopathic pulmonary fibrosis [Unknown]
  - Lower respiratory tract congestion [Unknown]
  - Productive cough [Unknown]
  - Weight decreased [Recovered/Resolved]
  - Malaise [Recovered/Resolved]
  - Asthenia [Recovered/Resolved]
  - Fatigue [Recovered/Resolved]
  - Dehydration [Recovered/Resolved]
  - Abdominal pain upper [Recovered/Resolved]
  - Flatulence [Recovered/Resolved]
  - Hypertension [Unknown]
  - Weight decreased [Unknown]
  - Decreased appetite [Unknown]
  - Dairy intolerance [Recovered/Resolved]
  - COVID-19 [Recovering/Resolving]
  - Neuropathy peripheral [Unknown]
  - Flatulence [Unknown]
  - Sinusitis [Unknown]
  - Nasal congestion [Unknown]
  - Secretion discharge [Not Recovered/Not Resolved]
  - Drainage [Not Recovered/Not Resolved]
  - Decreased appetite [Recovered/Resolved]
  - Ageusia [Recovered/Resolved]
  - Fatigue [Recovered/Resolved]
  - Asthenia [Recovered/Resolved]
  - Diarrhoea [Recovered/Resolved]
  - Taste disorder [Unknown]
  - Frequent bowel movements [Not Recovered/Not Resolved]
  - Fatigue [Unknown]
  - Diarrhoea [Not Recovered/Not Resolved]
  - Abdominal pain upper [Not Recovered/Not Resolved]
  - Cough [Unknown]
  - Epistaxis [Recovered/Resolved]
  - Dental operation [Unknown]
  - Abdominal distension [Unknown]
  - Joint stiffness [Unknown]
  - Hypotension [Unknown]
  - Asthenia [Unknown]
  - Illness [Unknown]

NARRATIVE: CASE EVENT DATE: 20210101
